FAERS Safety Report 9744364 (Version 3)
Quarter: 2014Q1

REPORT INFORMATION
  Report Type: Spontaneous
  Country: BR (occurrence: BR)
  Receive Date: 20131210
  Receipt Date: 20140114
  Transmission Date: 20141002
  Serious: Yes (Disabling)
  Sender: FDA-Public Use
  Company Number: BR-ASTRAZENECA-2010SE42707

PATIENT
  Age: 779 Month
  Sex: Male
  Weight: 98 kg

DRUGS (8)
  1. ATACAND [Suspect]
     Indication: HYPERTENSION
     Route: 048
     Dates: start: 2003, end: 201009
  2. BRILINTA [Suspect]
     Indication: THROMBOSIS PROPHYLAXIS
     Route: 048
     Dates: start: 20131121, end: 201312
  3. HYDROCHLOROTHIAQZIDE [Concomitant]
     Indication: HYPERTENSION
     Route: 048
     Dates: start: 2003
  4. TAMSULOSIN HYDROCHLORIDE [Concomitant]
     Indication: PROSTATIC DISORDER
     Route: 048
  5. DOXAZOSIN [Concomitant]
     Indication: PROSTATIC DISORDER
     Route: 048
  6. SIMVASTATIN [Concomitant]
     Indication: BLOOD CHOLESTEROL INCREASED
     Dosage: OD
     Route: 048
     Dates: start: 2013, end: 20131201
  7. SIMVASTATIN [Concomitant]
     Indication: BLOOD CHOLESTEROL INCREASED
     Dosage: OD
     Route: 048
  8. CLOPIDOGREL [Concomitant]
     Dates: start: 201311

REACTIONS (5)
  - Arthralgia [Recovered/Resolved]
  - Pain in extremity [Recovered/Resolved]
  - Pain in extremity [Recovered/Resolved]
  - Mobility decreased [Unknown]
  - Blood cholesterol increased [Recovered/Resolved]
